FAERS Safety Report 25163755 (Version 1)
Quarter: 2025Q2

REPORT INFORMATION
  Report Type: Spontaneous
  Country: IT (occurrence: IT)
  Receive Date: 20250405
  Receipt Date: 20250405
  Transmission Date: 20250717
  Serious: Yes (Hospitalization)
  Sender: ACCORD
  Company Number: IT-MENARINI-IT-MEN-098115

PATIENT
  Age: 62 Year
  Sex: Male

DRUGS (7)
  1. ATORVASTATIN [Suspect]
     Active Substance: ATORVASTATIN
     Indication: Product used for unknown indication
  2. ASPIRIN [Concomitant]
     Active Substance: ASPIRIN
  3. BISOPROLOL [Concomitant]
     Active Substance: BISOPROLOL
  4. FUROSEMIDE [Concomitant]
     Active Substance: FUROSEMIDE
  5. OMEPRAZOLE [Concomitant]
     Active Substance: OMEPRAZOLE
  6. RAMIPRIL [Concomitant]
     Active Substance: RAMIPRIL
  7. TICAGRELOR [Concomitant]
     Active Substance: TICAGRELOR

REACTIONS (2)
  - Hepatitis cholestatic [Recovering/Resolving]
  - Hyponatraemia [Recovering/Resolving]
